FAERS Safety Report 11927265 (Version 7)
Quarter: 2019Q1

REPORT INFORMATION
  Report Type: Report from Study
  Country: US (occurrence: US)
  Receive Date: 20160119
  Receipt Date: 20190308
  Transmission Date: 20190417
  Serious: Yes (Hospitalization)
  Sender: FDA-Public Use
  Company Number: US-SA-2016SA000735

PATIENT
  Age: 46 Year
  Sex: Male

DRUGS (1)
  1. ALEMTUZUMAB [Suspect]
     Active Substance: ALEMTUZUMAB
     Indication: MULTIPLE SCLEROSIS
     Dosage: 12 MG,QD
     Route: 041
     Dates: start: 20151215, end: 20151219

REACTIONS (13)
  - Decreased immune responsiveness [Not Recovered/Not Resolved]
  - Fatigue [Unknown]
  - CD4 lymphocytes decreased [Not Recovered/Not Resolved]
  - Urinary tract infection [Unknown]
  - Fatigue [Recovering/Resolving]
  - Hypoaesthesia [Unknown]
  - Mobility decreased [Not Recovered/Not Resolved]
  - Decubitus ulcer [Unknown]
  - Dysgraphia [Unknown]
  - Unevaluable event [Unknown]
  - Diarrhoea [Unknown]
  - Nasopharyngitis [Recovered/Resolved]
  - Blood magnesium decreased [Unknown]

NARRATIVE: CASE EVENT DATE: 201512
